FAERS Safety Report 21756853 (Version 1)
Quarter: 2022Q4

REPORT INFORMATION
  Report Type: Spontaneous
  Country: US (occurrence: None)
  Receive Date: 20221220
  Receipt Date: 20221220
  Transmission Date: 20230113
  Serious: No
  Sender: FDA-Public Use
  Company Number: 2022A397307

PATIENT
  Age: 2693 Day
  Sex: Male

DRUGS (1)
  1. SYMBICORT [Suspect]
     Active Substance: BUDESONIDE\FORMOTEROL FUMARATE DIHYDRATE
     Indication: Asthma
     Dosage: 160/4.5 MCG TWO RESPIRATORY INHALATIONS TWICE A DAY
     Route: 055

REACTIONS (4)
  - Drug dose omission by device [Unknown]
  - Product prescribing issue [Unknown]
  - Device malfunction [Unknown]
  - Device use issue [Unknown]

NARRATIVE: CASE EVENT DATE: 20221127
